FAERS Safety Report 12352081 (Version 2)
Quarter: 2016Q3

REPORT INFORMATION
  Report Type: Spontaneous
  Country: US (occurrence: US)
  Receive Date: 20160510
  Receipt Date: 20160712
  Transmission Date: 20161109
  Serious: Yes (Hospitalization)
  Sender: FDA-Public Use
  Company Number: US-ASTRAZENECA-2016SE48428

PATIENT
  Age: 56 Year
  Sex: Male

DRUGS (1)
  1. SYMBICORT [Suspect]
     Active Substance: BUDESONIDE\FORMOTEROL FUMARATE DIHYDRATE
     Dosage: 160/4.5 MICROGRAMS, 2 PUFFS, TWO TIMES A DAY
     Route: 055
     Dates: start: 201602

REACTIONS (3)
  - Product quality issue [Unknown]
  - Myocardial infarction [Unknown]
  - Type 1 diabetes mellitus [Unknown]

NARRATIVE: CASE EVENT DATE: 2016
